FAERS Safety Report 10346823 (Version 1)
Quarter: 2014Q3

REPORT INFORMATION
  Report Type: Spontaneous
  Country: US (occurrence: None)
  Receive Date: 20140725
  Receipt Date: 20140725
  Transmission Date: 20150326
  Serious: Yes (Hospitalization)
  Sender: FDA-Public Use
  Company Number: None

PATIENT
  Age: 89 Year
  Sex: Male
  Weight: 79.5 kg

DRUGS (1)
  1. VANCOMYCIN [Suspect]
     Active Substance: VANCOMYCIN
     Indication: OSTEOMYELITIS
     Dates: start: 20140607, end: 20140616

REACTIONS (5)
  - Toxicity to various agents [None]
  - Nephritis [None]
  - Overdose [None]
  - Renal failure acute [None]
  - Blood potassium decreased [None]

NARRATIVE: CASE EVENT DATE: 20140616
